FAERS Safety Report 15414775 (Version 8)
Quarter: 2019Q4

REPORT INFORMATION
  Report Type: Report from Study
  Country: US (occurrence: US)
  Receive Date: 20180921
  Receipt Date: 20191025
  Transmission Date: 20200122
  Serious: Yes (Hospitalization, Other)
  Sender: FDA-Public Use
  Company Number: US-TAKEDA-2018TUS027709

PATIENT
  Sex: Female

DRUGS (1)
  1. PONATINIB [Suspect]
     Active Substance: PONATINIB
     Indication: ACUTE LYMPHOCYTIC LEUKAEMIA
     Dosage: 15 MILLIGRAM, QD
     Route: 048
     Dates: start: 20180912

REACTIONS (11)
  - Visual impairment [Unknown]
  - Pancreatitis [Unknown]
  - Dry throat [Unknown]
  - Emotional disorder [Unknown]
  - Headache [Unknown]
  - Pain in extremity [Unknown]
  - Photophobia [Unknown]
  - Weight increased [Unknown]
  - Neuropathy peripheral [Unknown]
  - Constipation [Unknown]
  - Abdominal discomfort [Unknown]
